FAERS Safety Report 16224814 (Version 3)
Quarter: 2019Q2

REPORT INFORMATION
  Report Type: Spontaneous
  Country: JP (occurrence: JP)
  Receive Date: 20190422
  Receipt Date: 20190501
  Transmission Date: 20190711
  Serious: Yes (Death, Hospitalization, Other)
  Sender: FDA-Public Use
  Company Number: JP-ASTRAZENECA-2019SE59901

PATIENT
  Age: 75 Year
  Sex: Female

DRUGS (2)
  1. TAGRISSO [Suspect]
     Active Substance: OSIMERTINIB
     Indication: NON-SMALL CELL LUNG CANCER
     Route: 048
     Dates: start: 201901, end: 20190407
  2. RANMARK [Suspect]
     Active Substance: DENOSUMAB
     Dosage: DOSE UNKNOWN
     Route: 065
     Dates: start: 20190328, end: 20190407

REACTIONS (2)
  - Diabetic ketoacidosis [Fatal]
  - Cardio-respiratory arrest [Fatal]

NARRATIVE: CASE EVENT DATE: 20190405
